FAERS Safety Report 11192764 (Version 1)
Quarter: 2015Q2

REPORT INFORMATION
  Report Type: Spontaneous
  Country: US (occurrence: US)
  Receive Date: 20150616
  Receipt Date: 20150616
  Transmission Date: 20150821
  Serious: Yes (Other)
  Sender: FDA-Public Use
  Company Number: US-SA-2015SA074870

PATIENT
  Age: 53 Year
  Sex: Female
  Weight: 104.77 kg

DRUGS (1)
  1. ICY HOT MEDICATED, ADVANCED RELIEF [Suspect]
     Active Substance: MENTHOL
     Indication: MYALGIA
     Route: 065

REACTIONS (4)
  - Contusion [Recovering/Resolving]
  - Chemical injury [Recovering/Resolving]
  - Skin discolouration [Recovering/Resolving]
  - Blister [Recovering/Resolving]

NARRATIVE: CASE EVENT DATE: 20150522
